FAERS Safety Report 19441028 (Version 1)
Quarter: 2021Q2

REPORT INFORMATION
  Report Type: Spontaneous
  Country: IT (occurrence: IT)
  Receive Date: 20210621
  Receipt Date: 20210621
  Transmission Date: 20210717
  Serious: Yes (Other)
  Sender: FDA-Public Use
  Company Number: IT-009507513-2106ITA004909

PATIENT
  Age: 23 Year
  Sex: Female

DRUGS (1)
  1. LETERMOVIR [Suspect]
     Active Substance: LETERMOVIR
     Dosage: UNK

REACTIONS (7)
  - Pancytopenia [Unknown]
  - Bone marrow disorder [Unknown]
  - Epstein-Barr virus infection reactivation [Unknown]
  - Incorrect product administration duration [Unknown]
  - Multi-organ disorder [Unknown]
  - Cytomegalovirus infection reactivation [Unknown]
  - Haemophagocytic lymphohistiocytosis [Unknown]

NARRATIVE: CASE EVENT DATE: 2021
